FAERS Safety Report 20878533 (Version 1)
Quarter: 2022Q2

REPORT INFORMATION
  Report Type: Spontaneous
  Country: US (occurrence: None)
  Receive Date: 20220526
  Receipt Date: 20220526
  Transmission Date: 20220721
  Serious: No
  Sender: FDA-Public Use
  Company Number: None

PATIENT
  Age: 27 Year
  Sex: Male
  Weight: 148 kg

DRUGS (5)
  1. DEXTROAMPHETAMINE [Suspect]
     Active Substance: DEXTROAMPHETAMINE
     Dosage: FREQUENCY : TWICE A DAY;?
     Route: 048
     Dates: start: 20121025, end: 20171011
  2. DEXTROAMPHETAMINE [Suspect]
     Active Substance: DEXTROAMPHETAMINE
     Dosage: FREQUENCY : TWICE A DAY;?
     Route: 048
     Dates: start: 20171011, end: 20200503
  3. LISDEXAMFETAMINE [Suspect]
     Active Substance: LISDEXAMFETAMINE
     Dosage: FREQUENCY : DAILY;?
     Dates: start: 20111111, end: 20120118
  4. METHYLPHENIDATE [Suspect]
     Active Substance: METHYLPHENIDATE
     Dosage: FREQUENCY : DAILY;?
     Dates: start: 20110911, end: 20111125
  5. DEXMETHYLPHENIDATE [Suspect]
     Active Substance: DEXMETHYLPHENIDATE
     Dosage: FREQUENCY : TWICE A DAY;?
     Dates: start: 20220519, end: 20220520

REACTIONS (8)
  - Feeling abnormal [None]
  - Treatment failure [None]
  - Nausea [None]
  - Memory impairment [None]
  - Feeling abnormal [None]
  - Disturbance in attention [None]
  - Insomnia [None]
  - Feeling jittery [None]

NARRATIVE: CASE EVENT DATE: 20121025
